FAERS Safety Report 14509730 (Version 2)
Quarter: 2018Q2

REPORT INFORMATION
  Report Type: Spontaneous
  Country: US (occurrence: US)
  Receive Date: 20180209
  Receipt Date: 20180403
  Transmission Date: 20180711
  Serious: No
  Sender: FDA-Public Use
  Company Number: US-PFIZER INC-2018054077

PATIENT
  Age: 69 Year
  Sex: Female
  Weight: 68 kg

DRUGS (8)
  1. LISINOPRIL. [Concomitant]
     Active Substance: LISINOPRIL
     Dosage: 40 MG, DAILY
  2. JANUMET [Concomitant]
     Active Substance: METFORMIN HYDROCHLORIDE\SITAGLIPTIN PHOSPHATE
     Dosage: 50 MG, 2X/DAY
  3. LYRICA [Suspect]
     Active Substance: PREGABALIN
     Indication: DIABETIC NEUROPATHY
     Dosage: 50 MG, DAILY
     Route: 048
  4. HYDROCODONE [Concomitant]
     Active Substance: HYDROCODONE
     Indication: PAIN
     Dosage: UNK
  5. LYRICA [Suspect]
     Active Substance: PREGABALIN
     Indication: FIBROMYALGIA
     Dosage: 300 MG, 2X/DAY (BID)
     Route: 048
  6. LYRICA [Suspect]
     Active Substance: PREGABALIN
     Dosage: 300 MG, 1X/DAY
  7. NORVASC [Concomitant]
     Active Substance: AMLODIPINE BESYLATE
     Dosage: 10 MG, DAILY
  8. NORCO [Concomitant]
     Active Substance: ACETAMINOPHEN\HYDROCODONE BITARTRATE
     Dosage: UNK,  ( 1-2 TABLETS THREE TIMES DAILY), AS NEEDED

REACTIONS (2)
  - Intentional product use issue [Unknown]
  - Drug effect incomplete [Unknown]
